FAERS Safety Report 10136831 (Version 1)
Quarter: 2014Q2

REPORT INFORMATION
  Report Type: Spontaneous
  Country: US (occurrence: None)
  Receive Date: 20140428
  Receipt Date: 20140428
  Transmission Date: 20141212
  Serious: No
  Sender: FDA-Public Use
  Company Number: None

PATIENT
  Age: 59 Year
  Sex: Male

DRUGS (2)
  1. SOVALDI [Suspect]
     Dosage: TAKE  1 TABLET DAILY
     Dates: start: 20140319
  2. OLYSIO [Concomitant]

REACTIONS (3)
  - Ascites [None]
  - Fluid retention [None]
  - Weight increased [None]
